FAERS Safety Report 9149148 (Version 1)
Quarter: 2013Q1

REPORT INFORMATION
  Report Type: Spontaneous
  Country: US (occurrence: US)
  Receive Date: 20130308
  Receipt Date: 20130308
  Transmission Date: 20140127
  Serious: No
  Sender: FDA-Public Use
  Company Number: US-ENDO PHARMACEUTICALS INC.-OPCR20121773

PATIENT
  Sex: Female

DRUGS (3)
  1. OPANA ER 20MG [Suspect]
     Indication: PAIN
     Route: 048
     Dates: start: 201207
  2. OXYCODONE HCL [Concomitant]
     Indication: BREAKTHROUGH PAIN
     Dosage: UNK
     Route: 048
  3. OXYMORPHONE [Concomitant]
     Indication: PAIN
     Route: 048
     Dates: end: 2012

REACTIONS (5)
  - Feeling drunk [Not Recovered/Not Resolved]
  - Incoherent [Not Recovered/Not Resolved]
  - Somnolence [Not Recovered/Not Resolved]
  - Withdrawal syndrome [Not Recovered/Not Resolved]
  - Drug ineffective [Not Recovered/Not Resolved]
